FAERS Safety Report 9163396 (Version 8)
Quarter: 2013Q2

REPORT INFORMATION
  Report Type: Report from Study
  Country: DE (occurrence: DE)
  Receive Date: 20130314
  Receipt Date: 20130606
  Transmission Date: 20140414
  Serious: Yes (Death, Hospitalization)
  Sender: FDA-Public Use
  Company Number: DE-BAXTER-2013BAX008995

PATIENT
  Sex: Male

DRUGS (21)
  1. ENDOXAN 1G [Suspect]
     Indication: B-CELL LYMPHOMA
     Route: 042
     Dates: start: 20121106, end: 20130111
  2. PREDNISONE [Suspect]
     Indication: B-CELL LYMPHOMA
     Route: 048
     Dates: start: 20121115, end: 20130111
  3. RITUXIMAB [Suspect]
     Indication: B-CELL LYMPHOMA
     Route: 042
     Dates: start: 20121120
  4. RITUXIMAB [Suspect]
     Route: 042
     Dates: start: 20130110
  5. DOXORUBICIN [Suspect]
     Indication: B-CELL LYMPHOMA
     Route: 042
     Dates: start: 20121126, end: 20130111
  6. VINCRISTINE [Suspect]
     Indication: B-CELL LYMPHOMA
     Route: 042
     Dates: start: 20121127, end: 20130111
  7. PEGFILGRASTIM [Suspect]
     Indication: B-CELL LYMPHOMA
     Route: 058
     Dates: start: 20121129, end: 20130111
  8. PEGFILGRASTIM [Suspect]
     Route: 058
     Dates: start: 20121212
  9. PEGFILGRASTIM [Suspect]
     Route: 058
     Dates: start: 20121231
  10. PEGFILGRASTIM [Suspect]
     Route: 058
     Dates: start: 20130114, end: 20130114
  11. VORICONAZOLE [Concomitant]
     Indication: PNEUMONIA FUNGAL
     Route: 065
     Dates: start: 20130130
  12. DIGITOXIN [Concomitant]
     Indication: ATRIAL FIBRILLATION
     Route: 048
     Dates: start: 20130204, end: 20130318
  13. ACICLOVIR [Concomitant]
     Indication: PROPHYLAXIS
     Route: 048
  14. SULFAMETHOXAZOLE W/TRIMETHOPRIM [Concomitant]
     Indication: PROPHYLAXIS
     Route: 048
     Dates: start: 20121120, end: 20130318
  15. PANTOPRAZOLE [Concomitant]
     Indication: PRODUCT USED FOR UNKNOWN INDICATION
     Dosage: 40 MG/D
     Route: 065
  16. VALERIAN [Concomitant]
     Indication: PRODUCT USED FOR UNKNOWN INDICATION
     Route: 065
  17. DIPYRONE [Concomitant]
     Indication: PRODUCT USED FOR UNKNOWN INDICATION
     Route: 065
  18. METOCLOPRAMIDE HYDROCHLORIDE [Concomitant]
     Indication: PRODUCT USED FOR UNKNOWN INDICATION
     Route: 065
  19. CERTOPARIN SODIUM [Concomitant]
     Indication: PRODUCT USED FOR UNKNOWN INDICATION
     Dosage: 3000 IE/D
     Route: 058
  20. NACL [Concomitant]
     Indication: PRODUCT USED FOR UNKNOWN INDICATION
     Route: 042
  21. NACL [Concomitant]
     Indication: PRODUCT USED FOR UNKNOWN INDICATION
     Route: 048

REACTIONS (3)
  - Facial paresis [Recovered/Resolved]
  - Paresis cranial nerve [Recovered/Resolved]
  - Hyponatraemia [Fatal]
